FAERS Safety Report 5417717-2 (Version None)
Quarter: 2007Q3

REPORT INFORMATION
  Report Type: 
  Country: None (occurrence: None)
  Receive Date: 20070815
  Receipt Date: 20070815
  Transmission Date: 20080115
  Serious: Yes (Hospitalization)
  Sender: FDA-Public Use
  Company Number: None

PATIENT
  Sex: Male

DRUGS (2)
  1. CARBOPLATIN [Suspect]
     Indication: NEOPLASM MALIGNANT
     Dosage: PRIOR TO ADMISSION
  2. GEMZAR [Suspect]
     Indication: NEOPLASM MALIGNANT
     Dosage: PRIOR TO ADMISSION

REACTIONS (1)
  - THROMBOCYTOPENIA [None]
